FAERS Safety Report 19891562 (Version 3)
Quarter: 2023Q1

REPORT INFORMATION
  Report Type: Spontaneous
  Country: US (occurrence: US)
  Receive Date: 20210928
  Receipt Date: 20230213
  Transmission Date: 20230418
  Serious: No
  Sender: FDA-Public Use
  Company Number: US-BIOGEN-2021BI01029563

PATIENT
  Age: 60 Year
  Sex: Female

DRUGS (8)
  1. VUMERITY [Suspect]
     Active Substance: DIROXIMEL FUMARATE
     Indication: Multiple sclerosis
     Route: 050
     Dates: start: 20210426
  2. VUMERITY [Suspect]
     Active Substance: DIROXIMEL FUMARATE
     Dosage: TAKE 2 CAPSLUES BY MOUTH TWICE A DAY
     Route: 050
     Dates: start: 20210423, end: 20210429
  3. VUMERITY [Suspect]
     Active Substance: DIROXIMEL FUMARATE
     Route: 050
     Dates: start: 20210430
  4. CETRIZINE HCL [Concomitant]
     Route: 050
  5. LISINOPRIL [Concomitant]
     Active Substance: LISINOPRIL
     Route: 050
  6. LYRICA [Concomitant]
     Active Substance: PREGABALIN
     Route: 050
  7. TIZANIDINE HYDROCHLORIDE [Concomitant]
     Active Substance: TIZANIDINE HYDROCHLORIDE
     Route: 050
  8. JOLIVETTE [Concomitant]
     Active Substance: NORETHINDRONE
     Route: 050

REACTIONS (7)
  - Product use complaint [Unknown]
  - Tremor [Not Recovered/Not Resolved]
  - Muscle spasms [Unknown]
  - Motor dysfunction [Unknown]
  - Muscle twitching [Unknown]
  - Muscle tightness [Unknown]
  - Nausea [Unknown]

NARRATIVE: CASE EVENT DATE: 20210401
